FAERS Safety Report 6875648-5 (Version None)
Quarter: 2010Q3

REPORT INFORMATION
  Report Type: 
  Country: None (occurrence: None)
  Receive Date: 20100727
  Receipt Date: 20100721
  Transmission Date: 20110219
  Serious: Yes (Life-Threatening, Hospitalization, Other)
  Sender: FDA-Public Use
  Company Number: CH-ASTRAZENECA-2010SE34177

PATIENT
  Age: 55 Year
  Sex: Male

DRUGS (6)
  1. SEROQUEL [Suspect]
     Route: 048
     Dates: start: 20100427, end: 20100505
  2. TRAZODONE HCL [Suspect]
     Route: 065
     Dates: start: 20100427, end: 20100505
  3. FLUCTINE [Suspect]
     Route: 065
     Dates: start: 20100420, end: 20100505
  4. VALIUM [Concomitant]
     Dates: start: 20100505, end: 20100506
  5. HALDOL [Concomitant]
     Dates: start: 20100505, end: 20100506
  6. AKINETON [Concomitant]
     Dates: start: 20100505, end: 20100506

REACTIONS (7)
  - BALANCE DISORDER [None]
  - DISORIENTATION [None]
  - DYSKINESIA [None]
  - ENCEPHALOPATHY [None]
  - MUSCULAR WEAKNESS [None]
  - RHABDOMYOLYSIS [None]
  - SYNCOPE [None]
